FAERS Safety Report 6788604-2 (Version None)
Quarter: 2010Q2

REPORT INFORMATION
  Report Type: 
  Country: None (occurrence: None)
  Receive Date: 20100623
  Receipt Date: 20080610
  Transmission Date: 20101027
  Serious: Yes (Other)
  Sender: FDA-Public Use
  Company Number: US-PFIZER INC-2008022140

PATIENT
  Sex: Female
  Weight: 62 kg

DRUGS (5)
  1. SUTENT [Suspect]
     Indication: RENAL CELL CARCINOMA
     Route: 048
     Dates: start: 20080101
  2. CARDIZEM [Concomitant]
  3. LEVOXYL [Concomitant]
  4. CALCIUM PLUS [Concomitant]
  5. ACTONEL [Concomitant]

REACTIONS (14)
  - AGEUSIA [None]
  - ALOPECIA [None]
  - ASTHENIA [None]
  - DISEASE PROGRESSION [None]
  - EPISTAXIS [None]
  - EYE IRRITATION [None]
  - FATIGUE [None]
  - HAEMOPTYSIS [None]
  - HAIR COLOUR CHANGES [None]
  - HEADACHE [None]
  - INSOMNIA [None]
  - PARAESTHESIA [None]
  - RENAL CELL CARCINOMA [None]
  - WEIGHT DECREASED [None]
